FAERS Safety Report 25325283 (Version 1)
Quarter: 2025Q2

REPORT INFORMATION
  Report Type: Spontaneous
  Country: RO (occurrence: RO)
  Receive Date: 20250516
  Receipt Date: 20250516
  Transmission Date: 20250717
  Serious: Yes (Other)
  Sender: TEVA
  Company Number: RO-TEVA-VS-3331191

PATIENT
  Age: 24 Year
  Sex: Female

DRUGS (1)
  1. COPAXONE [Suspect]
     Active Substance: GLATIRAMER ACETATE
     Indication: Multiple sclerosis
     Route: 065
     Dates: start: 202503

REACTIONS (5)
  - Hemiparaesthesia [Unknown]
  - Fatigue [Unknown]
  - Motor dysfunction [Unknown]
  - Facial asymmetry [Unknown]
  - Central nervous system lesion [Unknown]
